FAERS Safety Report 11139324 (Version 2)
Quarter: 2015Q3

REPORT INFORMATION
  Report Type: Spontaneous
  Country: RO (occurrence: RO)
  Receive Date: 20150527
  Receipt Date: 20150702
  Transmission Date: 20151125
  Serious: Yes (Life-Threatening, Hospitalization, Disabling)
  Sender: FDA-Public Use
  Company Number: RO-TEVA-564121ISR

PATIENT
  Age: 10 Year
  Sex: Female

DRUGS (6)
  1. METHYLPREDNISOLONE. [Concomitant]
     Active Substance: METHYLPREDNISOLONE
     Indication: IMMUNOSUPPRESSION
     Dosage: 900 MILLIGRAM DAILY;
     Route: 042
     Dates: start: 20150409, end: 20150411
  2. ALBUMIN [Concomitant]
     Active Substance: ALBUMIN (HUMAN)
     Indication: PROTEIN DEFICIENCY
     Dosage: 50 ML DAILY;
     Route: 042
     Dates: start: 20150402
  3. ENAP [Concomitant]
     Active Substance: ENALAPRIL
     Route: 048
     Dates: start: 20150403
  4. EQUORAL 50 MG [Suspect]
     Active Substance: CYCLOSPORINE
     Indication: FOCAL SEGMENTAL GLOMERULOSCLEROSIS
     Route: 048
     Dates: start: 20150409, end: 20150418
  5. ENAP [Concomitant]
     Active Substance: ENALAPRIL
     Route: 065
     Dates: start: 20150403
  6. MILURIT [Concomitant]
     Active Substance: ALLOPURINOL
     Indication: HYPERURICAEMIA
     Dosage: 300 MILLIGRAM DAILY;
     Route: 048
     Dates: start: 20150402, end: 20150416

REACTIONS (9)
  - Tremor [Recovering/Resolving]
  - Hypertension [Recovered/Resolved]
  - Coma [Recovered/Resolved]
  - Back pain [Recovered/Resolved]
  - Seizure [Recovered/Resolved]
  - Amaurosis [Recovering/Resolving]
  - Leukoencephalopathy [Recovered/Resolved]
  - Cerebellar syndrome [Recovering/Resolving]
  - Ataxia [Recovering/Resolving]

NARRATIVE: CASE EVENT DATE: 20150410
